FAERS Safety Report 7021213-9 (Version None)
Quarter: 2010Q3

REPORT INFORMATION
  Report Type: 
  Country: None (occurrence: None)
  Receive Date: 20100929
  Receipt Date: 20100922
  Transmission Date: 20110219
  Serious: Yes (Other)
  Sender: FDA-Public Use
  Company Number: JP-PFIZER INC-2010116376

PATIENT
  Age: 27 Month
  Sex: Male

DRUGS (3)
  1. SOLU-MEDROL [Suspect]
     Indication: ASTHMA
     Dosage: 1 MG/KG, DAY
     Route: 042
     Dates: start: 20070701
  2. MEPTIN [Concomitant]
     Indication: ASTHMA
     Dosage: UNK
     Route: 055
     Dates: start: 20070701, end: 20070717
  3. ISOPRENALIN [Concomitant]
     Dosage: UNK
     Route: 055
     Dates: start: 20070717, end: 20070724

REACTIONS (1)
  - PNEUMONIA LEGIONELLA [None]
